FAERS Safety Report 23503410 (Version 4)
Quarter: 2024Q4

REPORT INFORMATION
  Report Type: Report from Study
  Country: US (occurrence: US)
  Receive Date: 20240208
  Receipt Date: 20241023
  Transmission Date: 20250115
  Serious: Yes (Other)
  Sender: ABBVIE
  Company Number: US-ABBVIE-5624674

PATIENT
  Sex: Female

DRUGS (7)
  1. SKYRIZI [Suspect]
     Active Substance: RISANKIZUMAB-RZAA
     Indication: Psoriasis
     Dosage: FORM STRENGTH: 150MG/ML?WEEK 0
     Route: 058
     Dates: start: 202310, end: 202310
  2. SKYRIZI [Suspect]
     Active Substance: RISANKIZUMAB-RZAA
     Dosage: FORM STRENGTH: 150MG/ML?FIRST AND LAST ADMIN DATE: 2024
     Route: 058
  3. SKYRIZI [Suspect]
     Active Substance: RISANKIZUMAB-RZAA
     Dosage: FORM STRENGTH: 150MG/ML? WEEK 4
     Route: 058
     Dates: start: 202311, end: 202311
  4. SKYRIZI [Suspect]
     Active Substance: RISANKIZUMAB-RZAA
     Dosage: DOSAGE: 150 MG/ML FORM STRENGTH: 150MG/M?FIRST AND LAST ADMIN DATE: 2024
     Route: 058
  5. SKYRIZI [Suspect]
     Active Substance: RISANKIZUMAB-RZAA
     Dosage: DOSAGE: 150 MG/ML FORM STRENGTH: 150MG/M?FIRST ADMIN DATE: 2024
     Route: 058
     Dates: end: 20241014
  6. SKYRIZI [Suspect]
     Active Substance: RISANKIZUMAB-RZAA
     Dosage: DOSAGE: 150 MG/ML
     Route: 058
     Dates: start: 202408, end: 202408
  7. SOTYKTU [Concomitant]
     Active Substance: DEUCRAVACITINIB
     Indication: Product used for unknown indication

REACTIONS (9)
  - Foot fracture [Unknown]
  - Psoriasis [Not Recovered/Not Resolved]
  - Skin fissures [Unknown]
  - Skin haemorrhage [Unknown]
  - Medical device pain [Unknown]
  - Allergy to metals [Unknown]
  - Drug ineffective [Unknown]
  - Rash [Recovering/Resolving]
  - Arthralgia [Recovering/Resolving]

NARRATIVE: CASE EVENT DATE: 20240101
